FAERS Safety Report 7890295-4 (Version None)
Quarter: 2011Q4

REPORT INFORMATION
  Report Type: 
  Country: None (occurrence: None)
  Receive Date: 20111103
  Receipt Date: 20110804
  Transmission Date: 20120403
  Serious: No
  Sender: FDA-Public Use
  Company Number: US-AMGEN-USASP2011039789

PATIENT
  Age: 47 Year
  Sex: Male

DRUGS (2)
  1. ENBREL [Suspect]
     Indication: RHEUMATOID ARTHRITIS
     Dosage: 50 MG, QWK
     Dates: start: 20110507
  2. PLAQUENIL [Concomitant]
     Dosage: 1 MG, QD
     Dates: start: 20091201

REACTIONS (2)
  - RHEUMATOID ARTHRITIS [None]
  - ABASIA [None]
